FAERS Safety Report 4931717-8 (Version None)
Quarter: 2006Q1

REPORT INFORMATION
  Report Type: 
  Country: None (occurrence: None)
  Receive Date: 20060303
  Receipt Date: 20060220
  Transmission Date: 20060701
  Serious: Yes (Other)
  Sender: FDA-Public Use
  Company Number: 2006SE01018

PATIENT

DRUGS (11)
  1. ATENOLOL [Suspect]
     Indication: BLOOD PRESSURE ABNORMAL
     Route: 048
  2. BLOPRESS [Interacting]
     Indication: BLOOD PRESSURE ABNORMAL
     Route: 048
  3. AMLODIPINE [Interacting]
     Indication: BLOOD PRESSURE ABNORMAL
     Route: 048
  4. AROTINOLOL [Interacting]
     Indication: BLOOD PRESSURE INCREASED
     Route: 048
  5. CILNIDIPINE [Interacting]
     Indication: BLOOD PRESSURE INCREASED
     Route: 048
  6. DOXAZOSIN [Interacting]
     Indication: BLOOD PRESSURE INCREASED
     Route: 048
  7. NIFEDIPINE [Interacting]
     Indication: BLOOD PRESSURE INCREASED
     Route: 048
  8. NIFEDIPINE [Interacting]
     Route: 048
  9. RIFAMPICIN [Interacting]
     Indication: TUBERCULOUS PLEURISY
     Route: 048
  10. TEMOCAPRIL [Interacting]
     Indication: BLOOD PRESSURE INCREASED
     Route: 048
  11. URAPIDIL [Interacting]
     Indication: BLOOD PRESSURE ABNORMAL
     Route: 048

REACTIONS (2)
  - BLOOD PRESSURE INCREASED [None]
  - DRUG INTERACTION [None]
